FAERS Safety Report 8174118-4 (Version None)
Quarter: 2012Q1

REPORT INFORMATION
  Report Type: 
  Country: None (occurrence: None)
  Receive Date: 20120224
  Receipt Date: 20120213
  Transmission Date: 20120608
  Serious: Yes (Other)
  Sender: FDA-Public Use
  Company Number: 2012P1005230

PATIENT
  Age: 43 Year
  Sex: Female

DRUGS (1)
  1. PROPYLTHIOURACIL [Suspect]
     Indication: BASEDOW'S DISEASE
     Dosage: 300 MG;QD;

REACTIONS (11)
  - AGRANULOCYTOSIS [None]
  - ACUTE FEBRILE NEUTROPHILIC DERMATOSIS [None]
  - PLEURAL EFFUSION [None]
  - FATIGUE [None]
  - HAEMATURIA [None]
  - HYPERTHYROIDISM [None]
  - PYREXIA [None]
  - PANCYTOPENIA [None]
  - DYSPNOEA [None]
  - ANTI-NEUTROPHIL CYTOPLASMIC ANTIBODY POSITIVE VASCULITIS [None]
  - MYALGIA [None]
